FAERS Safety Report 10168690 (Version 2)
Quarter: 2014Q2

REPORT INFORMATION
  Report Type: Spontaneous
  Country: US (occurrence: None)
  Receive Date: 20140509
  Receipt Date: 20140528
  Transmission Date: 20141212
  Serious: Yes (Life-Threatening, Hospitalization, Other)
  Sender: FDA-Public Use
  Company Number: AUR-APL-2014-05439

PATIENT
  Age: 44 Year
  Sex: Female

DRUGS (2)
  1. LISINOPRIL (LISINOPRIL) [Suspect]
     Indication: PRODUCT USED FOR UNKNOWN INDICATION
     Route: 048
  2. ATENOLOL AND CHLORTHALIDONE [Suspect]
     Indication: PRODUCT USED FOR UNKNOWN INDICATION
     Route: 048

REACTIONS (10)
  - Overdose [None]
  - Hypotension [None]
  - Mental status changes [None]
  - Acute respiratory distress syndrome [None]
  - Exposure via ingestion [None]
  - Overdose [None]
  - Heart rate decreased [None]
  - Cardiac output decreased [None]
  - Haemodialysis [None]
  - Self-medication [None]
